FAERS Safety Report 6486711-5 (Version None)
Quarter: 2009Q4

REPORT INFORMATION
  Report Type: 
  Country: None (occurrence: None)
  Receive Date: 20091210
  Receipt Date: 20091207
  Transmission Date: 20100525
  Serious: Yes (Other)
  Sender: FDA-Public Use
  Company Number: US-ROCHE-673537

PATIENT
  Age: 53 Year
  Sex: Male
  Weight: 112.5 kg

DRUGS (5)
  1. PEGASYS [Suspect]
     Indication: HEPATITIS C
     Route: 058
     Dates: start: 20091026
  2. COPEGUS [Suspect]
     Indication: HEPATITIS C
     Route: 048
     Dates: start: 20091026
  3. ZOCOR [Concomitant]
  4. CYCLOBENZAPRINE [Concomitant]
  5. TRAMADOL HCL [Concomitant]

REACTIONS (1)
  - DEEP VEIN THROMBOSIS [None]
